FAERS Safety Report 11747479 (Version 3)
Quarter: 2016Q1

REPORT INFORMATION
  Report Type: Spontaneous
  Country: BR (occurrence: BR)
  Receive Date: 20151117
  Receipt Date: 20160201
  Transmission Date: 20160525
  Serious: Yes (Other)
  Sender: FDA-Public Use
  Company Number: BR-ASTRAZENECA-2015SF03573

PATIENT
  Age: 28 Year
  Sex: Female
  Weight: 69 kg

DRUGS (4)
  1. FOLIC ACID. [Concomitant]
     Active Substance: FOLIC ACID
     Indication: PREGNANCY
     Dosage: DAILY
     Route: 048
     Dates: start: 201501
  2. ESOMEPRAZOLE MAGNESIUM. [Suspect]
     Active Substance: ESOMEPRAZOLE MAGNESIUM
     Indication: GASTRITIS
     Dosage: ESOMEPRAZOLE (MEDLEY) 40MG, DAILY
     Route: 048
     Dates: start: 20150916, end: 20151006
  3. ESOMEPRAZOLE MAGNESIUM. [Suspect]
     Active Substance: ESOMEPRAZOLE MAGNESIUM
     Indication: GASTROOESOPHAGEAL REFLUX DISEASE
     Dosage: ESOMEPRAZOLE (MEDLEY) 40MG, DAILY
     Route: 048
     Dates: start: 20150916, end: 20151006
  4. PROGESTERONE. [Concomitant]
     Active Substance: PROGESTERONE
     Dates: start: 20151015

REACTIONS (3)
  - Abortion spontaneous [Recovered/Resolved]
  - Haemorrhage [Not Recovered/Not Resolved]
  - Exposure during pregnancy [Recovered/Resolved]

NARRATIVE: CASE EVENT DATE: 20150916
